FAERS Safety Report 9890893 (Version 1)
Quarter: 2014Q1

REPORT INFORMATION
  Report Type: Report from Study
  Country: US (occurrence: US)
  Receive Date: 20140212
  Receipt Date: 20140212
  Transmission Date: 20141002
  Serious: Yes (Other)
  Sender: FDA-Public Use
  Company Number: US-ROXANE LABORATORIES, INC.-2014-BI-05446GD

PATIENT
  Sex: 0

DRUGS (2)
  1. MORPHINE [Suspect]
     Indication: PAIN
     Dosage: 105 MG
  2. METHADONE [Suspect]
     Indication: PAIN
     Dosage: 70 MG
     Route: 048

REACTIONS (1)
  - Abnormal behaviour [Unknown]
